FAERS Safety Report 14694410 (Version 1)
Quarter: 2018Q1

REPORT INFORMATION
  Report Type: Spontaneous
  Country: AT (occurrence: AT)
  Receive Date: 20180329
  Receipt Date: 20180329
  Transmission Date: 20180509
  Serious: Yes (Other)
  Sender: FDA-Public Use
  Company Number: AT-AMGEN-AUTSP2018007130

PATIENT
  Age: 70 Year
  Sex: Female
  Weight: 58 kg

DRUGS (11)
  1. OMEPRAZOLE. [Concomitant]
     Active Substance: OMEPRAZOLE
     Indication: GASTROOESOPHAGEAL REFLUX DISEASE
     Dosage: UNK
  2. DUROTIV [Concomitant]
     Active Substance: ESOMEPRAZOLE
     Dosage: 40 MG, QD
  3. SPIRONO [Concomitant]
     Dosage: 50 MG, 1/2-0-0
  4. AMLODIBENE [Concomitant]
     Dosage: 10 MG, 0-0-1/2
  5. CAL D VITA [Concomitant]
     Dosage: UNK UNK, QD
  6. RIVACOR PLUS [Concomitant]
     Dosage: UNK,0-0-1/2
  7. MAGNESIUM [Concomitant]
     Active Substance: MAGNESIUM
     Dosage: UNK UNK, BID
  8. PROLIA [Suspect]
     Active Substance: DENOSUMAB
     Indication: OSTEOPOROSIS
     Dosage: 60 MG, UNK
     Route: 065
     Dates: start: 201606
  9. EUTHYROX [Concomitant]
     Active Substance: LEVOTHYROXINE SODIUM
     Dosage: 50 MUG, QD
  10. TRITTICO [Concomitant]
     Active Substance: TRAZODONE HYDROCHLORIDE
     Dosage: 150 MG, 0-1/3
  11. PROPOFOL. [Concomitant]
     Active Substance: PROPOFOL
     Dosage: 50 MG, UNK

REACTIONS (8)
  - Nausea [Recovered/Resolved]
  - Tricuspid valve incompetence [Unknown]
  - Dilatation atrial [Unknown]
  - Barrett^s oesophagus [Unknown]
  - Thyroid mass [Unknown]
  - Dysphonia [Unknown]
  - Throat clearing [Unknown]
  - Diastolic dysfunction [Unknown]

NARRATIVE: CASE EVENT DATE: 2016
